FAERS Safety Report 22115227 (Version 1)
Quarter: 2023Q1

REPORT INFORMATION
  Report Type: Spontaneous
  Country: US (occurrence: None)
  Receive Date: 20230318
  Receipt Date: 20230318
  Transmission Date: 20230418
  Serious: No
  Sender: FDA-Public Use
  Company Number: None

PATIENT
  Age: 35 Year
  Sex: Female

DRUGS (1)
  1. DEXTROAMPHET SACCHARAT, AMPHET ASPARTATE, DEXTROAMPHET SULFATE AND AMP [Suspect]
     Active Substance: AMPHETAMINE ASPARTATE\AMPHETAMINE SULFATE\DEXTROAMPHETAMINE SACCHARATE\DEXTROAMPHETAMINE SULFATE
     Dosage: OTHER QUANTITY : 90 CAPSULE(S);?FREQUENCY : DAILY;?
     Route: 048
     Dates: start: 20230310

REACTIONS (5)
  - Product substitution issue [None]
  - Drug ineffective [None]
  - Fatigue [None]
  - Mood altered [None]
  - Disturbance in attention [None]
